FAERS Safety Report 7129730-8 (Version None)
Quarter: 2010Q4

REPORT INFORMATION
  Report Type: 
  Country: None (occurrence: None)
  Receive Date: 20101130
  Receipt Date: 20101123
  Transmission Date: 20110411
  Serious: Yes (Hospitalization, Other)
  Sender: FDA-Public Use
  Company Number: US-US-EMD SERONO, INC.-7022311

PATIENT
  Sex: Male
  Weight: 82 kg

DRUGS (6)
  1. REBIF [Suspect]
     Indication: MULTIPLE SCLEROSIS
     Route: 058
     Dates: start: 20101005, end: 20101029
  2. REBIF [Suspect]
     Route: 058
     Dates: start: 20100101, end: 20100101
  3. REBIF [Suspect]
     Route: 058
     Dates: start: 20100101
  4. VALIUM [Concomitant]
  5. VICODIN [Concomitant]
  6. PAIN KILLERS [Concomitant]
     Indication: BACK PAIN

REACTIONS (6)
  - ASTHENIA [None]
  - DECREASED APPETITE [None]
  - HAEMATURIA [None]
  - HYPERSOMNIA [None]
  - MULTIPLE SCLEROSIS RELAPSE [None]
  - PROSTATOMEGALY [None]
